FAERS Safety Report 12860261 (Version 1)
Quarter: 2016Q4

REPORT INFORMATION
  Report Type: Spontaneous
  Country: US (occurrence: US)
  Receive Date: 20161019
  Receipt Date: 20161019
  Transmission Date: 20170207
  Serious: No
  Sender: FDA-Public Use
  Company Number: US-LUPIN PHARMACEUTICALS INC.-E2B_00006016

PATIENT
  Sex: Female
  Weight: 126.67 kg

DRUGS (3)
  1. LISINOPRIL 10MG TABLETS [Suspect]
     Active Substance: LISINOPRIL
     Indication: HYPERTENSION
     Route: 048
  2. ACETAZOLAMIDE. [Concomitant]
     Active Substance: ACETAZOLAMIDE
     Indication: CARDIAC FAILURE CHRONIC
     Route: 065
  3. CARVEDILOL. [Concomitant]
     Active Substance: CARVEDILOL
     Indication: CARDIAC FAILURE CHRONIC
     Route: 065

REACTIONS (1)
  - Blood pressure decreased [Not Recovered/Not Resolved]
